FAERS Safety Report 18560430 (Version 1)
Quarter: 2020Q4

REPORT INFORMATION
  Report Type: Spontaneous
  Country: AU (occurrence: AU)
  Receive Date: 20201130
  Receipt Date: 20201130
  Transmission Date: 20210114
  Serious: Yes (Hospitalization)
  Sender: FDA-Public Use
  Company Number: AU-SA-2020SA336856

PATIENT

DRUGS (12)
  1. IRBESARTAN HYDROCHLOROTHIAZIDE ZENTIVA [Suspect]
     Active Substance: HYDROCHLOROTHIAZIDE\IRBESARTAN
     Dosage: UNK
  2. AMITRIPTYLINE HYDROCHLORIDE. [Suspect]
     Active Substance: AMITRIPTYLINE HYDROCHLORIDE
     Dosage: UNK
  3. HUMIRA [Suspect]
     Active Substance: ADALIMUMAB
  4. METHOTREXATE. [Suspect]
     Active Substance: METHOTREXATE
     Dosage: UNK
  5. GLYCERYL TRINITRATE [Suspect]
     Active Substance: NITROGLYCERIN
  6. ASPIRINE [Suspect]
     Active Substance: ASPIRIN
     Dosage: UNK
  7. ROSUVASTATIN. [Suspect]
     Active Substance: ROSUVASTATIN
     Dosage: UNK
  8. ISOSORBIDE MONONITRATE. [Suspect]
     Active Substance: ISOSORBIDE MONONITRATE
     Dosage: UNK
  9. DILTIAZEM HYDROCHLORIDE. [Suspect]
     Active Substance: DILTIAZEM HYDROCHLORIDE
     Dosage: UNK
  10. VENLAFAXINE HYDROCHLORIDE. [Suspect]
     Active Substance: VENLAFAXINE HYDROCHLORIDE
     Dosage: UNK
  11. FOLIC ACID. [Suspect]
     Active Substance: FOLIC ACID
     Dosage: UNK
  12. TICAGRELOR. [Suspect]
     Active Substance: TICAGRELOR
     Dosage: UNK

REACTIONS (8)
  - Neck pain [Unknown]
  - Fatigue [Unknown]
  - Arthralgia [Unknown]
  - Muscle tightness [Unknown]
  - Myalgia [Unknown]
  - Chest pain [Recovered/Resolved]
  - Discomfort [Unknown]
  - Dyspnoea exertional [Unknown]

NARRATIVE: CASE EVENT DATE: 20160315
